FAERS Safety Report 4663337-7 (Version None)
Quarter: 2005Q2

REPORT INFORMATION
  Report Type: 
  Country: None (occurrence: None)
  Receive Date: 20050517
  Receipt Date: 20050329
  Transmission Date: 20051028
  Serious: Yes (Death, Life-Threatening, Hospitalization)
  Sender: FDA-Public Use
  Company Number: 200510801EU

PATIENT
  Age: 57 Year
  Sex: Male
  Weight: 82 kg

DRUGS (7)
  1. DOCETAXEL [Suspect]
     Indication: NON-SMALL CELL LUNG CANCER
     Route: 042
     Dates: start: 20041217, end: 20050325
  2. RADIOTHERAPY [Suspect]
     Indication: NON-SMALL CELL LUNG CANCER
     Dates: start: 20050214, end: 20050326
  3. ULCOGANT [Concomitant]
     Indication: PROPHYLAXIS
     Route: 048
     Dates: start: 20050309
  4. SERETIDE [Concomitant]
     Indication: CHRONIC OBSTRUCTIVE PULMONARY DISEASE
     Route: 055
     Dates: start: 20041105
  5. TIOTROPIUM BROMIDE ^SPIRIVA^ [Concomitant]
     Indication: CHRONIC OBSTRUCTIVE PULMONARY DISEASE
     Route: 055
     Dates: start: 20041105
  6. LOVENOX [Concomitant]
     Indication: PROPHYLAXIS
     Route: 058
     Dates: start: 20041229
  7. RESPICUR [Concomitant]
     Indication: CHRONIC OBSTRUCTIVE PULMONARY DISEASE
     Route: 048
     Dates: start: 20041130

REACTIONS (15)
  - BLOOD PH INCREASED [None]
  - C-REACTIVE PROTEIN INCREASED [None]
  - DEATH [None]
  - DEEP VEIN THROMBOSIS [None]
  - DYSPNOEA [None]
  - HYPOXIA [None]
  - INTERSTITIAL LUNG DISEASE [None]
  - LYMPHOPENIA [None]
  - PROCEDURAL COMPLICATION [None]
  - PULMONARY EMBOLISM [None]
  - PYREXIA [None]
  - RIGHT VENTRICULAR FAILURE [None]
  - THERAPY NON-RESPONDER [None]
  - URINARY RETENTION [None]
  - URINARY TRACT INFECTION [None]
